FAERS Safety Report 14375793 (Version 1)
Quarter: 2018Q1

REPORT INFORMATION
  Report Type: Spontaneous
  Country: US (occurrence: US)
  Receive Date: 20180110
  Receipt Date: 20180110
  Transmission Date: 20180509
  Serious: Yes (Other)
  Sender: FDA-Public Use
  Company Number: None

PATIENT
  Age: 61 Year
  Sex: Female
  Weight: 163.5 kg

DRUGS (3)
  1. DIPHENHYDRAMINE. [Concomitant]
     Active Substance: DIPHENHYDRAMINE
  2. TYLENOL [Concomitant]
     Active Substance: ACETAMINOPHEN
  3. HERCEPTIN [Suspect]
     Active Substance: TRASTUZUMAB
     Indication: BREAST CANCER
     Dosage: HERCEPTIN 1308 MG IN 250 ML NS Q 21 DAYS INTRAVENOUSLY
     Route: 042
     Dates: start: 20171219

REACTIONS (6)
  - Infusion related reaction [None]
  - Blood pressure increased [None]
  - Oxygen saturation decreased [None]
  - Headache [None]
  - Chills [None]
  - Dyspnoea [None]

NARRATIVE: CASE EVENT DATE: 20171219
